FAERS Safety Report 5585972-4 (Version None)
Quarter: 2007Q4

REPORT INFORMATION
  Report Type: 
  Country: None (occurrence: None)
  Receive Date: 20071203
  Receipt Date: 20070502
  Transmission Date: 20080405
  Serious: Yes (Other)
  Sender: FDA-Public Use
  Company Number: 2007035500

PATIENT
  Age: 40 Year
  Sex: Female

DRUGS (1)
  1. ZYVOX [Suspect]
     Indication: MYCOBACTERIAL INFECTION
     Dates: start: 20070101, end: 20070406

REACTIONS (1)
  - NEUROPATHY PERIPHERAL [None]
